FAERS Safety Report 25239037 (Version 1)
Quarter: 2025Q2

REPORT INFORMATION
  Report Type: Spontaneous
  Country: TR (occurrence: TR)
  Receive Date: 20250425
  Receipt Date: 20250425
  Transmission Date: 20250716
  Serious: Yes (Death, Other)
  Sender: AMGEN
  Company Number: TR-AMGEN-TURSP2025079741

PATIENT

DRUGS (1)
  1. BEVACIZUMAB [Suspect]
     Active Substance: BEVACIZUMAB
     Indication: Colorectal cancer metastatic
     Route: 065

REACTIONS (10)
  - Death [Fatal]
  - Colorectal cancer metastatic [Unknown]
  - Fistula of small intestine [Unknown]
  - Enterocutaneous fistula [Unknown]
  - Pulmonary embolism [Unknown]
  - Intestinal obstruction [Unknown]
  - Therapy partial responder [Unknown]
  - Stoma site haemorrhage [Unknown]
  - Proteinuria [Unknown]
  - Hypertension [Unknown]
